FAERS Safety Report 6660783-7 (Version None)
Quarter: 2010Q1

REPORT INFORMATION
  Report Type: 
  Country: None (occurrence: None)
  Receive Date: 20100331
  Receipt Date: 20100317
  Transmission Date: 20100710
  Serious: Yes (Hospitalization)
  Sender: FDA-Public Use
  Company Number: US-ROCHE-681092

PATIENT
  Sex: Male
  Weight: 76 kg

DRUGS (5)
  1. BEVACIZUMAB [Suspect]
     Dosage: LAST DOSE ON 04 FEB 2010
     Route: 065
     Dates: start: 20091230, end: 20100211
  2. CETUXIMAB [Suspect]
     Route: 065
     Dates: start: 20091230, end: 20100111
  3. CETUXIMAB [Suspect]
     Dosage: LOADING DOSE AND LAST DOSE ON 02 FEB 2010
     Route: 065
  4. CISPLATIN [Suspect]
     Route: 065
     Dates: start: 20091230, end: 20100111
  5. CISPLATIN [Suspect]
     Dosage: LAST DOSE ON 02 FEB 2010. REDUCED TO DOSE LEVEL 1
     Route: 065

REACTIONS (10)
  - ABDOMINAL PAIN [None]
  - BLOOD AMYLASE INCREASED [None]
  - CONSTIPATION [None]
  - DEHYDRATION [None]
  - FATIGUE [None]
  - HYPOKALAEMIA [None]
  - HYPONATRAEMIA [None]
  - LYMPHOPENIA [None]
  - OROPHARYNGEAL PAIN [None]
  - WEIGHT DECREASED [None]
